FAERS Safety Report 16314639 (Version 1)
Quarter: 2019Q2

REPORT INFORMATION
  Report Type: Spontaneous
  Country: US (occurrence: US)
  Receive Date: 20190410
  Receipt Date: 20190410
  Transmission Date: 20190711
  Serious: No
  Sender: FDA-Public Use
  Company Number: None

PATIENT
  Age: 58 Year
  Sex: Female
  Weight: 90.72 kg

DRUGS (3)
  1. CIMZIA [Suspect]
     Active Substance: CERTOLIZUMAB PEGOL
     Indication: BACK PAIN
     Dosage: ?          OTHER FREQUENCY:EVERY 2 WKS AS DIR;?
     Route: 058
     Dates: start: 201902
  2. CIMZIA [Suspect]
     Active Substance: CERTOLIZUMAB PEGOL
     Indication: RHEUMATOID ARTHRITIS
     Dosage: ?          OTHER FREQUENCY:EVERY 2 WKS AS DIR;?
     Route: 058
     Dates: start: 201902
  3. CIMZIA [Suspect]
     Active Substance: CERTOLIZUMAB PEGOL
     Indication: CERVIX CARCINOMA
     Dosage: ?          OTHER FREQUENCY:EVERY 2 WKS AS DIR;?
     Route: 058
     Dates: start: 201902

REACTIONS (1)
  - Skin discolouration [None]
